FAERS Safety Report 13365559 (Version 1)
Quarter: 2017Q1

REPORT INFORMATION
  Report Type: Spontaneous
  Country: US (occurrence: US)
  Receive Date: 20170323
  Receipt Date: 20170323
  Transmission Date: 20170429
  Serious: No
  Sender: FDA-Public Use
  Company Number: US-ALLERGAN-2016-001043

PATIENT
  Age: 59 Year
  Sex: Female

DRUGS (1)
  1. ESTRACE [Suspect]
     Active Substance: ESTRADIOL
     Indication: HORMONE REPLACEMENT THERAPY
     Dosage: UNKNOWN
     Route: 067
     Dates: start: 20160425, end: 20160501

REACTIONS (2)
  - Vulvovaginal pruritus [Recovered/Resolved]
  - Vulvovaginal erythema [Recovered/Resolved]

NARRATIVE: CASE EVENT DATE: 20160501
